FAERS Safety Report 7110447-0 (Version None)
Quarter: 2010Q4

REPORT INFORMATION
  Report Type: 
  Country: None (occurrence: None)
  Receive Date: 20101116
  Receipt Date: 20101116
  Transmission Date: 20110411
  Serious: Yes (Other)
  Sender: FDA-Public Use
  Company Number: None

PATIENT
  Sex: Female
  Weight: 68.2 kg

DRUGS (1)
  1. ZALEPLON [Suspect]
     Indication: INSOMNIA
     Dosage: 10 MG ONCE PER DAY ORAL
     Route: 048
     Dates: start: 20101026, end: 20101105

REACTIONS (3)
  - DRUG INEFFECTIVE [None]
  - INSOMNIA [None]
  - PRODUCT SUBSTITUTION ISSUE [None]
